FAERS Safety Report 4660620-6 (Version None)
Quarter: 2005Q2

REPORT INFORMATION
  Report Type: 
  Country: None (occurrence: None)
  Receive Date: 20050425
  Receipt Date: 20041210
  Transmission Date: 20051028
  Serious: No
  Sender: FDA-Public Use
  Company Number: US102598

PATIENT
  Age: 59 Year
  Sex: Female
  Weight: 109 kg

DRUGS (5)
  1. SENSIPAR [Suspect]
     Indication: HYPERPARATHYROIDISM SECONDARY
     Dosage: 30 MG, 1 IN 1 DAYS,PO
     Route: 048
     Dates: start: 20040604, end: 20041201
  2. QUININE SULFATE [Concomitant]
  3. GABAPENTIN [Concomitant]
  4. SEVELAMER HCL [Concomitant]
  5. NEPHRO-CAPS [Concomitant]

REACTIONS (1)
  - GLOSSODYNIA [None]
